FAERS Safety Report 4733517-0 (Version None)
Quarter: 2005Q3

REPORT INFORMATION
  Report Type: 
  Country: None (occurrence: None)
  Receive Date: 20050801
  Receipt Date: 20050722
  Transmission Date: 20060218
  Serious: Yes (Life-Threatening, Hospitalization)
  Sender: FDA-Public Use
  Company Number: MEDI-0003543

PATIENT
  Age: 63 Year
  Sex: Male

DRUGS (9)
  1. ETHYOL [Suspect]
     Indication: DRY MOUTH
     Dosage: 200 MG/M2, INTRAVENOUS
     Route: 042
     Dates: start: 20050525, end: 20050707
  2. ETHYOL [Suspect]
     Indication: RADIOTHERAPY
     Dosage: 200 MG/M2, INTRAVENOUS
     Route: 042
     Dates: start: 20050525, end: 20050707
  3. RADIATION THERAPY [Concomitant]
  4. ZOFRAN [Concomitant]
  5. FLUCONAZOLE [Concomitant]
  6. ALLOPURINOL [Concomitant]
  7. ESIDRIX [Concomitant]
  8. TENORDATE (NIFEDIPINE, ATENOLOL) [Concomitant]
  9. SOLU-MEDROL [Concomitant]

REACTIONS (2)
  - DRUG TOXICITY [None]
  - STEVENS-JOHNSON SYNDROME [None]
